APPROVED DRUG PRODUCT: THEOPHYLLINE
Active Ingredient: THEOPHYLLINE
Strength: 450MG
Dosage Form/Route: TABLET, EXTENDED RELEASE;ORAL
Application: A216300 | Product #002 | TE Code: AB
Applicant: BIONPHARMA INC
Approved: Apr 26, 2023 | RLD: No | RS: No | Type: RX